FAERS Safety Report 4284255-2 (Version None)
Quarter: 2004Q1

REPORT INFORMATION
  Report Type: 
  Country: None (occurrence: None)
  Receive Date: 20040202
  Receipt Date: 20040202
  Transmission Date: 20041129
  Serious: Yes (Hospitalization, Disabling)
  Sender: FDA-Public Use
  Company Number: None

PATIENT
  Sex: Female
  Weight: 54.4316 kg

DRUGS (1)
  1. XIGRIS [Suspect]
     Indication: SEPSIS
     Dosage: 24 MCG/KG X 96 HRS INTRAVENOUS
     Route: 042
     Dates: start: 20040114, end: 20040218

REACTIONS (3)
  - APHASIA [None]
  - ASTHENIA [None]
  - HAEMORRHAGIC CEREBRAL INFARCTION [None]
